FAERS Safety Report 10183680 (Version 1)
Quarter: 2014Q2

REPORT INFORMATION
  Report Type: Spontaneous
  Country: US (occurrence: US)
  Receive Date: 20140520
  Receipt Date: 20140520
  Transmission Date: 20141212
  Serious: No
  Sender: FDA-Public Use
  Company Number: US-PFIZER INC-2014135084

PATIENT
  Sex: 0

DRUGS (1)
  1. INLYTA [Suspect]
     Dosage: 5 MG, 2X/DAY
     Route: 048

REACTIONS (1)
  - Drug intolerance [Unknown]
